FAERS Safety Report 7772696-8 (Version None)
Quarter: 2011Q3

REPORT INFORMATION
  Report Type: 
  Country: None (occurrence: None)
  Receive Date: 20110922
  Receipt Date: 20100827
  Transmission Date: 20111222
  Serious: No
  Sender: FDA-Public Use
  Company Number: US-ASTRAZENECA-2008UW04310

PATIENT
  Age: 410 Month
  Sex: Female
  Weight: 68.9 kg

DRUGS (24)
  1. CARBIDOPA AND LEVODOPA [Concomitant]
     Dosage: 25/100 ONE TABLET AT BEDTIME
     Route: 048
     Dates: start: 20051114
  2. PIROXICAM [Concomitant]
     Route: 048
     Dates: start: 20061030
  3. SEROQUEL [Suspect]
     Indication: DEPRESSION
     Route: 048
     Dates: start: 20030101
  4. OYST-CALCIUM PLUS D 500 [Concomitant]
     Dosage: ONE TABLET TWICE A DAY
     Route: 048
     Dates: start: 20051104
  5. PRILOSEC OTC [Concomitant]
     Route: 048
     Dates: start: 20051123
  6. AMITRIPTYLINE HCL [Concomitant]
     Route: 048
     Dates: start: 20051114
  7. LISINOPRIL AND HYDROCHLOROTHIAZIDE [Concomitant]
     Dosage: 10/12.5, ONE TABLET DAILY IN MORNING
     Route: 048
     Dates: start: 20060518
  8. ALPRAZOLAM [Concomitant]
     Route: 048
     Dates: start: 20060602
  9. HYDROCOD/APAP [Concomitant]
     Dosage: 7.5/650 MG ONE TABLET DAILY
     Route: 048
     Dates: start: 20010613
  10. REQUIP [Concomitant]
     Route: 048
     Dates: start: 20070126
  11. SEROQUEL [Suspect]
     Route: 048
     Dates: start: 20060627
  12. SEROQUEL [Suspect]
     Route: 048
     Dates: start: 20070301, end: 20071101
  13. SEROQUEL [Suspect]
     Route: 048
     Dates: start: 20070301, end: 20071101
  14. DOCUSATE SODIUM [Concomitant]
     Dates: start: 20051101
  15. METHYLPREDNISOLONE PAK [Concomitant]
     Dosage: 4M, AS DIRECTED
     Dates: start: 20060630
  16. SEROQUEL [Suspect]
     Route: 048
     Dates: start: 20060627
  17. PROPOXYPHENE NAPSYLATE-AP [Concomitant]
     Dates: start: 20010709
  18. GUAIFENEX DM [Concomitant]
     Dosage: 600/30, ONE TABLET TWICE A DAY
     Route: 048
     Dates: start: 20051123
  19. OXYBUTYNIN [Concomitant]
     Route: 048
     Dates: start: 20060601
  20. FLUTICASONE PRO NS [Concomitant]
     Dosage: 500 MCG, ONE SPRAY IN EACH NOSTRIL TWICE IN A DAY
     Dates: start: 20060619
  21. CITALOPRAM HYDROBROMIDE [Concomitant]
     Route: 048
     Dates: start: 20060602
  22. SERTRALINE HYDROCHLORIDE [Concomitant]
     Route: 048
     Dates: start: 20060601
  23. SEROQUEL [Suspect]
     Indication: ANXIETY
     Route: 048
     Dates: start: 20030101
  24. LORATADINE [Concomitant]
     Route: 048
     Dates: start: 20060602

REACTIONS (3)
  - TYPE 2 DIABETES MELLITUS [None]
  - DIABETIC COMPLICATION [None]
  - DIABETES MELLITUS [None]
